FAERS Safety Report 19263618 (Version 1)
Quarter: 2021Q2

REPORT INFORMATION
  Report Type: Spontaneous
  Country: US (occurrence: US)
  Receive Date: 20210514
  Receipt Date: 20210514
  Transmission Date: 20210717
  Serious: No
  Sender: FDA-Public Use
  Company Number: None

PATIENT
  Sex: Male
  Weight: 98.8 kg

DRUGS (26)
  1. CAPECITABINE 500MG TABLET [Suspect]
     Active Substance: CAPECITABINE
     Indication: SALIVARY GLAND CANCER
     Dosage: 2000 MG BID X 14 DAYS ORAL
     Route: 048
     Dates: start: 20200808
  2. VITAMIN D [Concomitant]
     Active Substance: VITAMIN D NOS
  3. FLU VACCINE [Concomitant]
     Active Substance: INFLUENZA VIRUS VACCINE
  4. GABAPENTIN. [Concomitant]
     Active Substance: GABAPENTIN
  5. LIDOCAINE. [Concomitant]
     Active Substance: LIDOCAINE
  6. ACETAMINOPHEN. [Concomitant]
     Active Substance: ACETAMINOPHEN
  7. DIPHENHYDRAMINE. [Concomitant]
     Active Substance: DIPHENHYDRAMINE
  8. ONDANSETRON [Concomitant]
     Active Substance: ONDANSETRON
  9. FENANTYL [Concomitant]
  10. BCOMPLEX [Concomitant]
  11. ATORVASTATIN [Concomitant]
     Active Substance: ATORVASTATIN
  12. OLOPATADINE. [Concomitant]
     Active Substance: OLOPATADINE
  13. TUKYSA [Concomitant]
     Active Substance: TUCATINIB
  14. CARVEDILOL. [Concomitant]
     Active Substance: CARVEDILOL
  15. TRULICITY [Concomitant]
     Active Substance: DULAGLUTIDE
  16. LOPERAMIDE [Concomitant]
     Active Substance: LOPERAMIDE
  17. HERCEPTIN [Concomitant]
     Active Substance: TRASTUZUMAB
  18. COLESEVELAM [Concomitant]
     Active Substance: COLESEVELAM
  19. DIPHOXYLATE?ATROPINE [Concomitant]
  20. HYDROCORTISONE. [Concomitant]
     Active Substance: HYDROCORTISONE
  21. IBUPROFEN. [Concomitant]
     Active Substance: IBUPROFEN
  22. NALOXONE [Concomitant]
     Active Substance: NALOXONE
  23. LISINOPRIL. [Concomitant]
     Active Substance: LISINOPRIL
  24. METFORMIN [Concomitant]
     Active Substance: METFORMIN HYDROCHLORIDE
  25. CENTRUM [Concomitant]
     Active Substance: VITAMINS
  26. OXYCODONE [Concomitant]
     Active Substance: OXYCODONE

REACTIONS (3)
  - Diarrhoea [None]
  - Flatulence [None]
  - Sleep disorder [None]
